FAERS Safety Report 9772262 (Version 2)
Quarter: 2014Q1

REPORT INFORMATION
  Report Type: Spontaneous
  Country: US (occurrence: US)
  Receive Date: 20131219
  Receipt Date: 20140121
  Transmission Date: 20141002
  Serious: Yes (Other)
  Sender: FDA-Public Use
  Company Number: US-ASTELLAS-2013US012840

PATIENT
  Age: 77 Year
  Sex: Female
  Weight: 75 kg

DRUGS (8)
  1. VESICARE [Suspect]
     Indication: INCONTINENCE
     Dosage: 5 MG, UNKNOWN/D
     Route: 048
     Dates: start: 20100706
  2. VESICARE [Suspect]
     Indication: STRESS
     Dosage: 5 MG, UNKNOWN/D
     Route: 048
  3. VESICARE [Suspect]
     Indication: URGE INCONTINENCE
  4. RANEXA [Concomitant]
     Indication: CARDIAC DISORDER
     Dosage: 500 MG, TWICE DAILY
     Route: 048
  5. ATENOLOL [Concomitant]
     Indication: BLOOD PRESSURE
     Dosage: 25 MG, ONCE DAILY
     Route: 048
  6. ASPIRIN [Concomitant]
     Indication: CARDIAC DISORDER
     Dosage: 81 MG, ONCE DAILY
     Route: 048
  7. PRAVASTATIN [Concomitant]
     Indication: BLOOD CHOLESTEROL
     Dosage: 40 MG, ONCE DAILY
     Route: 048
  8. LEVOTHYROXINE [Concomitant]
     Indication: HYPOTHYROIDISM
     Dosage: 50 UG, ONCE DAILY
     Route: 048

REACTIONS (4)
  - Drug ineffective [Unknown]
  - Off label use [Unknown]
  - Hysterectomy [Recovered/Resolved]
  - Bladder disorder [Unknown]
